FAERS Safety Report 25849019 (Version 1)
Quarter: 2025Q3

REPORT INFORMATION
  Report Type: Spontaneous
  Country: US (occurrence: None)
  Receive Date: 20250925
  Receipt Date: 20250925
  Transmission Date: 20251020
  Serious: No
  Sender: FDA-CTU
  Company Number: None

PATIENT
  Age: 51 Year
  Sex: Female
  Weight: 67.59 kg

DRUGS (1)
  1. DUPIXENT [Suspect]
     Active Substance: DUPILUMAB
     Indication: Nasal polyps
     Dosage: 300 MG/ML EVERY OTHER WEEK SUBCUTANEOUS ?
     Route: 058
     Dates: start: 20250804, end: 20250825

REACTIONS (2)
  - Eye inflammation [None]
  - Eye disorder [None]

NARRATIVE: CASE EVENT DATE: 20250925
